FAERS Safety Report 5382669-0 (Version None)
Quarter: 2007Q3

REPORT INFORMATION
  Report Type: 
  Country: None (occurrence: None)
  Receive Date: 20070703
  Receipt Date: 20070703
  Transmission Date: 20080115
  Serious: No
  Sender: FDA-Public Use
  Company Number: None

PATIENT
  Sex: Female

DRUGS (1)
  1. CLOSE-UP TOOTHPASTE [Suspect]

REACTIONS (4)
  - BLOOD COUNT ABNORMAL [None]
  - GINGIVAL BLEEDING [None]
  - LABORATORY TEST ABNORMAL [None]
  - THERAPEUTIC PRODUCT CONTAMINATION [None]
